FAERS Safety Report 6233380-5 (Version None)
Quarter: 2009Q2

REPORT INFORMATION
  Report Type: 
  Country: None (occurrence: None)
  Receive Date: 20090616
  Receipt Date: 20090616
  Transmission Date: 20091009
  Serious: Yes (Hospitalization)
  Sender: FDA-Public Use
  Company Number: None

PATIENT
  Age: 67 Year

DRUGS (2)
  1. SULFAMETHOXAZOLE AND TRIMETHOPRIM [Suspect]
     Dosage: 2 TAB BID PO
     Route: 048
     Dates: start: 20090602, end: 20090607
  2. . [Concomitant]

REACTIONS (5)
  - HYPERKALAEMIA [None]
  - HYPERMAGNESAEMIA [None]
  - NEPHROPATHY TOXIC [None]
  - RENAL FAILURE ACUTE [None]
  - RENAL INJURY [None]
